FAERS Safety Report 6704209-3 (Version None)
Quarter: 2010Q2

REPORT INFORMATION
  Report Type: 
  Country: None (occurrence: None)
  Receive Date: 20100430
  Receipt Date: 20100419
  Transmission Date: 20101027
  Serious: Yes (Other)
  Sender: FDA-Public Use
  Company Number: US-JNJFOC-20100104282

PATIENT
  Sex: Female
  Weight: 90.27 kg

DRUGS (3)
  1. REMICADE [Suspect]
     Indication: CROHN'S DISEASE
     Dosage: 5 VIALS
     Route: 042
  2. REMICADE [Suspect]
     Dosage: 5 VIALS
     Route: 042
  3. REMICADE [Suspect]
     Dosage: 5 VIALS
     Route: 042

REACTIONS (5)
  - CHEST DISCOMFORT [None]
  - CHILLS [None]
  - DYSKINESIA [None]
  - INFUSION RELATED REACTION [None]
  - TREMOR [None]
